FAERS Safety Report 17450680 (Version 1)
Quarter: 2020Q1

REPORT INFORMATION
  Report Type: Spontaneous
  Country: US (occurrence: US)
  Receive Date: 20200222
  Receipt Date: 20200222
  Transmission Date: 20200409
  Serious: Yes (Hospitalization)
  Sender: FDA-Public Use
  Company Number: None

PATIENT
  Age: 33 Year
  Sex: Male

DRUGS (1)
  1. SULFADIAZINE. [Suspect]
     Active Substance: SULFADIAZINE
     Indication: TOXOPLASMOSIS
     Dosage: ?          OTHER FREQUENCY:Q6H;?
     Route: 048
     Dates: start: 20190528, end: 20190606

REACTIONS (4)
  - Toxoplasmosis [None]
  - Immunodeficiency [None]
  - Conjunctivitis [None]
  - Stevens-Johnson syndrome [None]

NARRATIVE: CASE EVENT DATE: 20190606
